FAERS Safety Report 6034194-1 (Version None)
Quarter: 2009Q1

REPORT INFORMATION
  Report Type: 
  Country: None (occurrence: None)
  Receive Date: 20090112
  Receipt Date: 20090108
  Transmission Date: 20090719
  Serious: Yes (Other)
  Sender: FDA-Public Use
  Company Number: US-BAYER-200910089BCC

PATIENT
  Age: 90 Year
  Sex: Male
  Weight: 66 kg

DRUGS (3)
  1. ALEVE [Suspect]
     Indication: MYALGIA
     Dosage: TOTAL DAILY DOSE: 440 MG  UNIT DOSE: 220 MG
     Dates: start: 20081214
  2. FUROSEMIDE [Concomitant]
  3. ATENOLOL [Concomitant]

REACTIONS (1)
  - HAEMATOCHEZIA [None]
